FAERS Safety Report 19849826 (Version 1)
Quarter: 2021Q3

REPORT INFORMATION
  Report Type: Spontaneous
  Country: DE (occurrence: DE)
  Receive Date: 20210918
  Receipt Date: 20210918
  Transmission Date: 20211014
  Serious: Yes (Hospitalization)
  Sender: FDA-Public Use
  Company Number: DE-ACCORD-238892

PATIENT
  Age: 86 Year
  Sex: Female
  Weight: 68 kg

DRUGS (9)
  1. APIXABAN [Concomitant]
     Active Substance: APIXABAN
     Dosage: 2.5 MG, 1?0?1?0
  2. ALENDRONATE SODIUM/ALENDRONIC ACID [Concomitant]
     Active Substance: ALENDRONATE SODIUM
     Dosage: 70 MG,  SCHEME
  3. SIMVASTATIN. [Concomitant]
     Active Substance: SIMVASTATIN
     Dosage: 20 MG, 0?0?1?0
  4. COLECALCIFEROL/RETINOL [Concomitant]
     Dosage: 140 UG,  SCHEME
  5. SPIRONOLACTONE. [Suspect]
     Active Substance: SPIRONOLACTONE
     Indication: PRODUCT USED FOR UNKNOWN INDICATION
     Dosage: 50 MG, 1?0?0?0
  6. TORASEMIDE [Suspect]
     Active Substance: TORSEMIDE
     Indication: PRODUCT USED FOR UNKNOWN INDICATION
     Dosage: 50 MG, 1?0?0?0
  7. BISOPROLOL [Suspect]
     Active Substance: BISOPROLOL
     Indication: PRODUCT USED FOR UNKNOWN INDICATION
     Dosage: 5 MG, 1?0?1?0
  8. RAMIPRIL. [Suspect]
     Active Substance: RAMIPRIL
     Indication: PRODUCT USED FOR UNKNOWN INDICATION
     Dosage: 5 MG, 1?0?0.5?0
  9. NALOXONE HYDROCHLORIDE/TILIDINE HYDROCHLORIDE [Concomitant]
     Active Substance: NALOXONE HYDROCHLORIDE\TILIDINE HYDROCHLORIDE
     Dosage: 4 50 MG, 20?20?20?0

REACTIONS (11)
  - Electrocardiogram abnormal [Unknown]
  - Renal impairment [Unknown]
  - Tachycardia [Unknown]
  - Systemic infection [Unknown]
  - Oedema peripheral [Unknown]
  - Weight increased [Unknown]
  - Hyperkalaemia [Unknown]
  - General physical health deterioration [Unknown]
  - Atrial fibrillation [Unknown]
  - Skin irritation [Unknown]
  - Anaemia [Unknown]
